FAERS Safety Report 18467900 (Version 1)
Quarter: 2020Q4

REPORT INFORMATION
  Report Type: Spontaneous
  Country: US (occurrence: US)
  Receive Date: 20201104
  Receipt Date: 20201104
  Transmission Date: 20210114
  Serious: No
  Sender: FDA-Public Use
  Company Number: None

PATIENT
  Age: 60 Year
  Sex: Female

DRUGS (1)
  1. ORENCIA [Suspect]
     Active Substance: ABATACEPT
     Route: 058
     Dates: start: 202010

REACTIONS (4)
  - Urticaria [None]
  - Drug hypersensitivity [None]
  - Rash [None]
  - Pruritus [None]

NARRATIVE: CASE EVENT DATE: 20201020
